FAERS Safety Report 8363450-7 (Version None)
Quarter: 2012Q2

REPORT INFORMATION
  Report Type: 
  Country: None (occurrence: None)
  Receive Date: 20120514
  Receipt Date: 20120504
  Transmission Date: 20120825
  Serious: No
  Sender: FDA-Public Use
  Company Number: 2012SP024360

PATIENT
  Sex: Female

DRUGS (1)
  1. SYCREST (ASENAPINE /05706901/) (5 MG) [Suspect]
     Indication: PRODUCT USED FOR UNKNOWN INDICATION
     Dosage: 5 MG;BID;SL
     Route: 060

REACTIONS (1)
  - PRURITUS [None]
